FAERS Safety Report 5941851-1 (Version None)
Quarter: 2008Q4

REPORT INFORMATION
  Report Type: 
  Country: None (occurrence: None)
  Receive Date: 20081105
  Receipt Date: 20081028
  Transmission Date: 20090506
  Serious: Yes (Death)
  Sender: FDA-Public Use
  Company Number: ES-AVENTIS-200820309GDDC

PATIENT
  Age: 56 Year
  Sex: Male

DRUGS (1)
  1. RIFATER [Suspect]
     Indication: TUBERCULOSIS
     Dosage: DOSE: 1 TABLET 5X DAILY
     Route: 048
     Dates: start: 20080601, end: 20080601

REACTIONS (3)
  - ACUTE HEPATIC FAILURE [None]
  - JAUNDICE [None]
  - MULTI-ORGAN FAILURE [None]
